FAERS Safety Report 9486894 (Version 2)
Quarter: 2013Q3

REPORT INFORMATION
  Report Type: Spontaneous
  Country: US (occurrence: US)
  Receive Date: 20130829
  Receipt Date: 20130927
  Transmission Date: 20140515
  Serious: Yes (Death, Other)
  Sender: FDA-Public Use
  Company Number: US-GILEAD-2013-0082123

PATIENT
  Age: 57 Year
  Sex: Male

DRUGS (3)
  1. LETAIRIS [Suspect]
     Indication: PULMONARY HYPERTENSION
     Dosage: 10 MG, QD
     Route: 048
     Dates: start: 20130427
  2. LETAIRIS [Suspect]
     Indication: PORTAL HYPERTENSION
  3. ADCIRCA [Concomitant]
     Dates: start: 20111207, end: 20130826

REACTIONS (2)
  - Death [Fatal]
  - Hepatocellular carcinoma [Unknown]
